FAERS Safety Report 18844146 (Version 1)
Quarter: 2021Q1

REPORT INFORMATION
  Report Type: Report from Study
  Country: US (occurrence: US)
  Receive Date: 20210203
  Receipt Date: 20210203
  Transmission Date: 20210419
  Serious: No
  Sender: FDA-Public Use
  Company Number: US-EXELIXIS-CABO-20027522

PATIENT
  Age: 13 Year
  Sex: Male

DRUGS (18)
  1. MIRALAX [Concomitant]
     Active Substance: POLYETHYLENE GLYCOL 3350
  2. CITALOPRAM [Concomitant]
     Active Substance: CITALOPRAM HYDROBROMIDE
     Dosage: UNK
  3. LEVOTHYROXINE SODIUM. [Concomitant]
     Active Substance: LEVOTHYROXINE SODIUM
     Dosage: UNK
  4. LORAZEPAM. [Concomitant]
     Active Substance: LORAZEPAM
  5. MEGACE [Concomitant]
     Active Substance: MEGESTROL ACETATE
  6. HYDROXYZINE HCL [Concomitant]
     Active Substance: HYDROXYZINE HYDROCHLORIDE
  7. BACTRIM [Concomitant]
     Active Substance: SULFAMETHOXAZOLE\TRIMETHOPRIM
  8. ONDANSETRON [Concomitant]
     Active Substance: ONDANSETRON
  9. CABOMETYX [Suspect]
     Active Substance: CABOZANTINIB S-MALATE
     Dosage: 60 MG, QD
     Route: 048
  10. GABAPENTIN. [Concomitant]
     Active Substance: GABAPENTIN
  11. MELATONIN [Concomitant]
     Active Substance: MELATONIN
  12. PROMETHAZINE [Concomitant]
     Active Substance: PROMETHAZINE HYDROCHLORIDE
  13. BENADRYL ALLERGY [Concomitant]
     Active Substance: DIPHENHYDRAMINE HYDROCHLORIDE
  14. OXYCODONE [Concomitant]
     Active Substance: OXYCODONE
  15. TYLENOL [Concomitant]
     Active Substance: ACETAMINOPHEN
  16. LOPERAMIDE [Concomitant]
     Active Substance: LOPERAMIDE
  17. CABOMETYX [Suspect]
     Active Substance: CABOZANTINIB S-MALATE
     Indication: BONE CANCER
     Dosage: 60 MG, QD
     Route: 048
  18. COLACE [Concomitant]
     Active Substance: DOCUSATE SODIUM

REACTIONS (10)
  - Limb discomfort [Unknown]
  - Hair colour changes [Unknown]
  - Hypothyroidism [Unknown]
  - Skin discolouration [Unknown]
  - Skin exfoliation [Unknown]
  - Blister [Not Recovered/Not Resolved]
  - Depressed mood [Unknown]
  - Diarrhoea [Not Recovered/Not Resolved]
  - Decreased appetite [Unknown]
  - Off label use [Unknown]

NARRATIVE: CASE EVENT DATE: 20200301
